FAERS Safety Report 5730101-7 (Version None)
Quarter: 2008Q2

REPORT INFORMATION
  Report Type: 
  Country: None (occurrence: None)
  Receive Date: 20080507
  Receipt Date: 20080424
  Transmission Date: 20081010
  Serious: No
  Sender: FDA-Public Use
  Company Number: PHEH2008US04232

PATIENT
  Age: 71 Year
  Sex: Female
  Weight: 101.59 kg

DRUGS (4)
  1. DIOVAN HCT [Concomitant]
  2. FUROSEMIDE [Concomitant]
  3. ATENOLOL CHLORTHALIDONE ^BIOCHEMIE^ [Concomitant]
     Dosage: 50/25 MG, QD
  4. RECLAST [Suspect]
     Indication: OSTEOPOROSIS POSTMENOPAUSAL
     Dosage: 5 MG, ONCE/SINGLE
     Route: 042
     Dates: start: 20080410

REACTIONS (2)
  - BLOOD CALCIUM DECREASED [None]
  - BLOOD CREATININE INCREASED [None]
